FAERS Safety Report 4982993-7 (Version None)
Quarter: 2006Q2

REPORT INFORMATION
  Report Type: 
  Country: None (occurrence: None)
  Receive Date: 20060426
  Receipt Date: 20060418
  Transmission Date: 20061013
  Serious: Yes (Death, Other)
  Sender: FDA-Public Use
  Company Number: PHBS2006NL05512

PATIENT
  Sex: Female

DRUGS (4)
  1. VOLTAREN [Suspect]
     Indication: PAIN
     Route: 030
  2. FENTANYL [Concomitant]
     Dosage: 25 UG, UNK
     Dates: start: 20060101
  3. MORPHINE [Concomitant]
  4. OXYNORM [Concomitant]
     Dosage: 5 MG/DAY
     Dates: start: 20060101

REACTIONS (3)
  - DISEASE PROGRESSION [None]
  - INJECTION SITE ISCHAEMIA [None]
  - OVARIAN CANCER METASTATIC [None]
